FAERS Safety Report 8379998-5 (Version None)
Quarter: 2012Q1

REPORT INFORMATION
  Report Type: 
  Country: None (occurrence: None)
  Receive Date: 20120323
  Receipt Date: 20110404
  Transmission Date: 20120608
  Serious: Yes (Hospitalization)
  Sender: FDA-Public Use
  Company Number: 163-21880-11040449

PATIENT
  Age: 82 Year
  Sex: Male
  Weight: 87.0906 kg

DRUGS (10)
  1. PROCARDIA [Concomitant]
  2. ATENOLOL [Concomitant]
  3. IMDUR [Concomitant]
  4. PLAVIX [Concomitant]
  5. LIPITOR [Concomitant]
  6. PRILOSEC [Concomitant]
  7. REVLIMID [Suspect]
     Indication: MULTIPLE MYELOMA
     Dosage: 10 MG, 1 IN 1 D, PO ; 10 MG, 1 IN 1 D, PO
     Route: 048
     Dates: start: 20101214, end: 20110320
  8. REVLIMID [Suspect]
     Indication: MULTIPLE MYELOMA
     Dosage: 10 MG, 1 IN 1 D, PO ; 10 MG, 1 IN 1 D, PO
     Route: 048
     Dates: start: 20110403, end: 20110405
  9. ASPIRIN [Concomitant]
  10. PROCRIT [Concomitant]

REACTIONS (2)
  - THROMBOSIS [None]
  - PULMONARY EMBOLISM [None]
